FAERS Safety Report 19887364 (Version 1)
Quarter: 2021Q3

REPORT INFORMATION
  Report Type: Spontaneous
  Country: FR (occurrence: FR)
  Receive Date: 20210928
  Receipt Date: 20210928
  Transmission Date: 20211014
  Serious: Yes (Other)
  Sender: FDA-Public Use
  Company Number: FR-TEVA-2021-FR-1957977

PATIENT
  Age: 20 Year
  Sex: Male

DRUGS (7)
  1. VALIUM [Concomitant]
     Active Substance: DIAZEPAM
  2. CHLORHYDRATE DE TRAMADOL [Suspect]
     Active Substance: TRAMADOL HYDROCHLORIDE
     Indication: PAIN
     Dosage: 20 DF
     Route: 048
     Dates: end: 20210728
  3. LEXOMIL [Concomitant]
     Active Substance: BROMAZEPAM
  4. QUETIAPINE. [Concomitant]
     Active Substance: QUETIAPINE
  5. TERCIAN [Concomitant]
     Active Substance: CYAMEMAZINE
  6. TERALITHE [Concomitant]
     Active Substance: LITHIUM CARBONATE
  7. CHLORHYDRATE DE PROPRANOLOL [Concomitant]
     Active Substance: PROPRANOLOL HYDROCHLORIDE

REACTIONS (3)
  - Disturbance in attention [Recovered/Resolved]
  - Myoclonus [Recovered/Resolved]
  - Accidental overdose [Recovered/Resolved]

NARRATIVE: CASE EVENT DATE: 20210727
